FAERS Safety Report 8507343 (Version 3)
Quarter: 2013Q1

REPORT INFORMATION
  Report Type: Spontaneous
  Country: US (occurrence: US)
  Receive Date: 20120412
  Receipt Date: 20130125
  Transmission Date: 20140127
  Serious: Yes (Hospitalization)
  Sender: FDA-Public Use
  Company Number: US-ASTRAZENECA-2011SE74992

PATIENT
  Age: 58 Year
  Sex: Female

DRUGS (1)
  1. NEXIUM [Suspect]
     Route: 048

REACTIONS (14)
  - Malaise [Unknown]
  - Gastric ulcer [Unknown]
  - Gastrooesophageal reflux disease [Unknown]
  - Chest pain [Unknown]
  - Back pain [Unknown]
  - Dyspepsia [Unknown]
  - Weight decreased [Unknown]
  - Pain [Unknown]
  - Sleep disorder due to general medical condition, insomnia type [Unknown]
  - Thyroid disorder [Unknown]
  - Epigastric discomfort [Unknown]
  - Abdominal pain upper [Unknown]
  - Abdominal discomfort [Unknown]
  - Drug dose omission [Unknown]
